FAERS Safety Report 9915228 (Version 1)
Quarter: 2014Q1

REPORT INFORMATION
  Report Type: Report from Study
  Country: US (occurrence: US)
  Receive Date: 20140220
  Receipt Date: 20140220
  Transmission Date: 20141002
  Serious: Yes (Other)
  Sender: FDA-Public Use
  Company Number: US-ROCHE-1343601

PATIENT
  Sex: Female

DRUGS (12)
  1. LUCENTIS [Suspect]
     Indication: AGE-RELATED MACULAR DEGENERATION
     Route: 050
  2. LUCENTIS [Suspect]
     Indication: MACULAR FIBROSIS
     Route: 050
  3. AVASTIN [Suspect]
     Indication: PRODUCT USED FOR UNKNOWN INDICATION
     Route: 065
  4. VITAMIN D3 [Concomitant]
     Route: 048
  5. METHOTREXATE [Concomitant]
     Dosage: 2 TABLETS (5MG)
     Route: 048
  6. ZOCOR [Concomitant]
     Dosage: IN THE EVENING
     Route: 048
  7. HYDROCHLOROTHIAZIDE [Concomitant]
     Route: 048
  8. FOLIC ACID [Concomitant]
     Route: 048
  9. KAOCHLOR [Concomitant]
     Dosage: DISSOLVED IN 120-240 MLS OF COLD WATER
     Route: 048
  10. FOSAMAX [Concomitant]
     Route: 048
  11. MELOXICAM [Concomitant]
     Route: 048
  12. NORVASC [Concomitant]
     Route: 048

REACTIONS (6)
  - Keratitis [Unknown]
  - Vision blurred [Unknown]
  - Metamorphopsia [Unknown]
  - Overdose [Unknown]
  - Arthralgia [Unknown]
  - Off label use [Unknown]
